FAERS Safety Report 24760153 (Version 1)
Quarter: 2024Q4

REPORT INFORMATION
  Report Type: Spontaneous
  Country: US (occurrence: US)
  Receive Date: 20241220
  Receipt Date: 20241220
  Transmission Date: 20250115
  Serious: No
  Sender: PFIZER
  Company Number: US-PFIZER INC-202400327106

PATIENT
  Age: 53 Year
  Sex: Female

DRUGS (1)
  1. LITFULO [Suspect]
     Active Substance: RITLECITINIB TOSYLATE
     Dosage: 50 MG, 1X/DAY
     Dates: start: 2024

REACTIONS (1)
  - Drug effect less than expected [Unknown]
